FAERS Safety Report 10074788 (Version 1)
Quarter: 2014Q2

REPORT INFORMATION
  Report Type: Spontaneous
  Country: US (occurrence: US)
  Receive Date: 20140414
  Receipt Date: 20140414
  Transmission Date: 20141212
  Serious: No
  Sender: FDA-Public Use
  Company Number: US-BIOGENIDEC-2014BI033952

PATIENT
  Sex: Female

DRUGS (2)
  1. TYSABRI [Suspect]
     Indication: MULTIPLE SCLEROSIS
     Route: 042
     Dates: start: 20080206, end: 20081030
  2. TYSABRI [Suspect]
     Indication: MULTIPLE SCLEROSIS
     Route: 042
     Dates: start: 20111109

REACTIONS (25)
  - Dyspepsia [Unknown]
  - Memory impairment [Unknown]
  - Brain injury [Unknown]
  - Stress [Unknown]
  - Anxiety [Unknown]
  - General physical health deterioration [Unknown]
  - Emotional disorder [Unknown]
  - Emotional distress [Unknown]
  - Pain [Unknown]
  - Vein disorder [Unknown]
  - Hyperaesthesia [Unknown]
  - Dysphemia [Unknown]
  - Pineal gland cyst [Unknown]
  - Fear [Unknown]
  - Bone disorder [Unknown]
  - Speech disorder [Unknown]
  - Anger [Unknown]
  - Panic attack [Unknown]
  - Sensory disturbance [Unknown]
  - Neuropathy peripheral [Unknown]
  - Cognitive disorder [Unknown]
  - Dyspnoea [Unknown]
  - Drug ineffective [Unknown]
  - Multiple sclerosis [Unknown]
  - Malaise [Unknown]
